FAERS Safety Report 7501533-1 (Version None)
Quarter: 2011Q2

REPORT INFORMATION
  Report Type: 
  Country: None (occurrence: None)
  Receive Date: 20110524
  Receipt Date: 20110512
  Transmission Date: 20111010
  Serious: Yes (Other)
  Sender: FDA-Public Use
  Company Number: ES-WATSON-2011-05614

PATIENT
  Age: 39 Year
  Sex: Female

DRUGS (1)
  1. PENICILLIN G POTASSIUM [Suspect]
     Indication: TONSILLITIS
     Dosage: 1.2 MU
     Route: 030

REACTIONS (1)
  - PANNICULITIS [None]
